FAERS Safety Report 8478490-7 (Version None)
Quarter: 2012Q2

REPORT INFORMATION
  Report Type: 
  Country: None (occurrence: None)
  Receive Date: 20120615
  Receipt Date: 20120604
  Transmission Date: 20120825
  Serious: Yes (Other)
  Sender: FDA-Public Use
  Company Number: DSA_57807_2012

PATIENT

DRUGS (3)
  1. FLUOROURACIL [Suspect]
     Indication: GASTRIC CANCER
     Dosage: DF, INTRAVENOUS (NOT OTHERWISE SPECIFIED), 400MG/M2 INTRAVENOUS BOLUS) (2400-3600,G/
     Route: 040
  2. THERAPEUTIC RADIOPHARMACEUTICALS THERAPEUTIC RADIOPHARMACEUTICALS) [Suspect]
     Indication: GASTRIC CANCER
     Dosage: DF
  3. LEUCOVORIN CALCIUM [Suspect]
     Indication: GASTRIC CANCER
     Dosage: 200 MG/M2)

REACTIONS (1)
  - VOMITING [None]
